FAERS Safety Report 5187081-5 (Version None)
Quarter: 2006Q4

REPORT INFORMATION
  Report Type: 
  Country: None (occurrence: None)
  Receive Date: 20061214
  Receipt Date: 20060718
  Transmission Date: 20070319
  Serious: Yes (Other)
  Sender: FDA-Public Use
  Company Number: 2006088513

PATIENT
  Sex: Male

DRUGS (1)
  1. GLIPIZIDE [Suspect]
     Indication: DIABETES MELLITUS NON-INSULIN-DEPENDENT
     Dosage: 15 MG (5 MG, 3 IN 1 D), ORAL
     Route: 048
     Dates: end: 20060701

REACTIONS (2)
  - DIABETES MELLITUS INADEQUATE CONTROL [None]
  - THYROID CANCER [None]
